FAERS Safety Report 6015090-2 (Version None)
Quarter: 2008Q4

REPORT INFORMATION
  Report Type: 
  Country: None (occurrence: None)
  Receive Date: 20081218
  Receipt Date: 20081203
  Transmission Date: 20090506
  Serious: Yes (Hospitalization)
  Sender: FDA-Public Use
  Company Number: 2008SP003047

PATIENT
  Age: 3 Year
  Sex: Female

DRUGS (8)
  1. XOPENEX [Suspect]
     Indication: WHEEZING
     Dosage: 0.63 MG; Q4H; INHALATION, 0.63 MG; PRN; INHALATION
     Route: 055
     Dates: start: 20080903, end: 20080101
  2. XOPENEX [Suspect]
     Indication: WHEEZING
     Dosage: 0.63 MG; Q4H; INHALATION, 0.63 MG; PRN; INHALATION
     Route: 055
     Dates: start: 20080101
  3. TEGRETOL [Suspect]
     Indication: CONVULSION
     Dosage: SEE IMAGE
     Dates: end: 20081201
  4. TEGRETOL [Suspect]
     Indication: CONVULSION
     Dosage: SEE IMAGE
     Dates: end: 20081201
  5. TEGRETOL [Suspect]
     Indication: CONVULSION
     Dosage: SEE IMAGE
     Dates: end: 20081201
  6. TEGRETOL [Suspect]
     Indication: CONVULSION
     Dosage: SEE IMAGE
     Dates: start: 20081101
  7. TEGRETOL [Suspect]
     Indication: CONVULSION
     Dosage: SEE IMAGE
     Dates: start: 20081202
  8. KEPPRA [Concomitant]

REACTIONS (1)
  - CONVULSION [None]
